FAERS Safety Report 12249621 (Version 1)
Quarter: 2016Q2

REPORT INFORMATION
  Report Type: Spontaneous
  Country: US (occurrence: US)
  Receive Date: 20160408
  Receipt Date: 20160408
  Transmission Date: 20160815
  Serious: Yes (Other)
  Sender: FDA-Public Use
  Company Number: ADR-2014-02164

PATIENT
  Age: 55 Year
  Sex: Male

DRUGS (6)
  1. DILAUDID [Suspect]
     Active Substance: HYDROMORPHONE HYDROCHLORIDE
     Dosage: 1MG/DAY
     Route: 037
     Dates: end: 20141111
  2. COMPOUNDED BACLOFEN [Suspect]
     Active Substance: BACLOFEN
     Dosage: 8.01MCG/DAY
     Route: 037
     Dates: start: 20141111
  3. DILAUDID [Suspect]
     Active Substance: HYDROMORPHONE HYDROCHLORIDE
     Dosage: 0.481MG/DAY
     Route: 037
     Dates: start: 20141111
  4. COMPOUNDED BACLOFEN [Suspect]
     Active Substance: BACLOFEN
     Dosage: 16.64MCG/DAY
     Route: 037
     Dates: end: 20141111
  5. MSIR [Suspect]
     Active Substance: MORPHINE SULFATE
  6. MS CONTIN [Suspect]
     Active Substance: MORPHINE SULFATE

REACTIONS (3)
  - Back pain [Recovered/Resolved]
  - Pain in extremity [Recovered/Resolved]
  - Therapeutic response decreased [Recovered/Resolved]
